FAERS Safety Report 12225335 (Version 1)
Quarter: 2016Q1

REPORT INFORMATION
  Report Type: Spontaneous
  Country: US (occurrence: None)
  Receive Date: 20160330
  Receipt Date: 20160330
  Transmission Date: 20160526
  Serious: No
  Sender: FDA-Public Use
  Company Number: None

PATIENT
  Age: 79 Year
  Sex: Female

DRUGS (9)
  1. RAMIPRIL. [Concomitant]
     Active Substance: RAMIPRIL
  2. ZYKADIA [Concomitant]
     Active Substance: CERITINIB
  3. CEFPODOXIME [Concomitant]
     Active Substance: CEFPODOXIME
  4. GLIMEPRIIDE [Concomitant]
  5. XALKORI [Suspect]
     Active Substance: CRIZOTINIB
     Indication: PLASMA CELL MYELOMA
     Route: 048
     Dates: start: 201510, end: 20160318
  6. ANASTROXOL [Concomitant]
  7. PATNORPAZ [Concomitant]
  8. REVLIMID [Concomitant]
     Active Substance: LENALIDOMIDE
  9. XALKORI [Suspect]
     Active Substance: CRIZOTINIB
     Indication: BRONCHIAL CARCINOMA
     Route: 048
     Dates: start: 201510, end: 20160318

REACTIONS (1)
  - Drug ineffective [None]

NARRATIVE: CASE EVENT DATE: 20160318
